FAERS Safety Report 23885353 (Version 1)
Quarter: 2024Q2

REPORT INFORMATION
  Report Type: Spontaneous
  Country: US (occurrence: US)
  Receive Date: 20240522
  Receipt Date: 20240522
  Transmission Date: 20240716
  Serious: No
  Sender: FDA-Public Use
  Company Number: US-SA-SAC20240515000633

PATIENT
  Sex: Male

DRUGS (2)
  1. DUPIXENT [Suspect]
     Active Substance: DUPILUMAB
     Indication: Dermatitis atopic
     Dosage: 300 MG, QOW
     Route: 058
     Dates: start: 202206
  2. METHOTREXATE [Suspect]
     Active Substance: METHOTREXATE
     Dosage: UNK

REACTIONS (3)
  - Face oedema [Unknown]
  - Rash [Unknown]
  - Drug hypersensitivity [Unknown]
